FAERS Safety Report 9108660 (Version 1)
Quarter: 2013Q1

REPORT INFORMATION
  Report Type: Spontaneous
  Country: FR (occurrence: FR)
  Receive Date: 20130222
  Receipt Date: 20130222
  Transmission Date: 20140127
  Serious: Yes (Other)
  Sender: FDA-Public Use
  Company Number: FR-PFIZER INC-2013023161

PATIENT
  Age: 80 Year
  Sex: Female

DRUGS (12)
  1. DYNASTAT [Suspect]
     Indication: PAIN
     Dosage: 40 MG
     Route: 042
     Dates: start: 20121008, end: 20121008
  2. MORPHINE SULFATE [Suspect]
     Indication: PAIN
     Dosage: UNK
     Route: 042
     Dates: start: 20121008, end: 20121008
  3. BUPIVACAINE AGUETTANT [Suspect]
     Indication: ANAESTHESIA
     Dosage: 4 ML
     Route: 024
     Dates: start: 20121008, end: 20121008
  4. CEFUROXIME PANPHARMA [Suspect]
     Indication: ANTIBIOTIC PROPHYLAXIS
     Dosage: UNK
     Route: 042
     Dates: start: 20121008, end: 20121008
  5. PARACETAMOL PANPHARMA [Suspect]
     Indication: PAIN
     Dosage: UNK
     Route: 042
     Dates: start: 20121008, end: 20121009
  6. PRADAXA [Suspect]
     Indication: THROMBOSIS PROPHYLAXIS
     Dosage: 75 MG DAILY
     Route: 048
     Dates: start: 20121008, end: 20121009
  7. NEFOPAM MYLAN [Suspect]
     Indication: PAIN
     Dosage: 20 MG
     Route: 042
     Dates: start: 20121008, end: 20121008
  8. SIMVASTATIN [Concomitant]
     Dosage: 20
  9. VENLAFAXINE [Concomitant]
     Dosage: 75
  10. LANSOPRAZOLE [Concomitant]
     Dosage: 30
  11. VENTOLINE [Concomitant]
     Dosage: UNK
  12. BECOTIDE [Concomitant]
     Dosage: UNK

REACTIONS (3)
  - Transaminases increased [Recovered/Resolved]
  - Bilirubin conjugated abnormal [Unknown]
  - Blood bilirubin unconjugated increased [Unknown]
